FAERS Safety Report 5971383-6 (Version None)
Quarter: 2008Q4

REPORT INFORMATION
  Report Type: 
  Country: None (occurrence: None)
  Receive Date: 20081130
  Receipt Date: 20081120
  Transmission Date: 20090506
  Serious: Yes (Hospitalization, Other)
  Sender: FDA-Public Use
  Company Number: JP-PFIZER INC-2008096174

PATIENT
  Sex: Female

DRUGS (7)
  1. LIPITOR [Suspect]
     Indication: HYPERCHOLESTEROLAEMIA
     Route: 048
     Dates: start: 20070901, end: 20081109
  2. CELECOX [Suspect]
     Indication: OSTEOARTHRITIS
     Route: 048
     Dates: start: 20081024, end: 20081109
  3. NORVASC [Suspect]
     Route: 048
     Dates: start: 20070129, end: 20081109
  4. INFLUENZA VACCINE [Suspect]
     Route: 058
     Dates: start: 20081107, end: 20081107
  5. VALSARTAN [Suspect]
     Route: 048
     Dates: start: 20060821, end: 20081109
  6. OPALMON [Suspect]
     Route: 048
     Dates: start: 20070501, end: 20081109
  7. ZANTAC [Suspect]
     Route: 048
     Dates: start: 20070516, end: 20081109

REACTIONS (1)
  - TOXIC SKIN ERUPTION [None]
